FAERS Safety Report 4834962-5 (Version None)
Quarter: 2005Q4

REPORT INFORMATION
  Report Type: 
  Country: None (occurrence: None)
  Receive Date: 20051114
  Receipt Date: 20051103
  Transmission Date: 20060501
  Serious: No
  Sender: FDA-Public Use
  Company Number: A001-RASA201-3891

PATIENT
  Age: 73 Year
  Sex: Male
  Weight: 84.1 kg

DRUGS (5)
  1. DONEPEZIL HCL [Suspect]
     Indication: DEMENTIA ALZHEIMER'S TYPE
     Dosage: 10 MG, 1 IN 1 D, ORAL
     Route: 048
     Dates: start: 20020501, end: 20051104
  2. RASAGILINE/PLACEBO [Suspect]
     Indication: DEMENTIA ALZHEIMER'S TYPE
     Dosage: DOUBLEBLIND, 1 IN 1 D, ORAL
     Route: 048
     Dates: start: 20050506, end: 20051104
  3. CENTRUM SILVER (CENTRUM SILVER) [Concomitant]
  4. VITAMIN C (ASCORBIC ACID) [Concomitant]
  5. VITAMIN E [Concomitant]

REACTIONS (5)
  - ACTINIC KERATOSIS [None]
  - BASAL CELL CARCINOMA [None]
  - MALIGNANT MELANOMA [None]
  - PRECANCEROUS SKIN LESION [None]
  - SEBORRHOEIC KERATOSIS [None]
